FAERS Safety Report 15658333 (Version 1)
Quarter: 2018Q4

REPORT INFORMATION
  Report Type: Spontaneous
  Country: None (occurrence: US)
  Receive Date: 20181126
  Receipt Date: 20181126
  Transmission Date: 20190205
  Serious: No
  Sender: FDA-Public Use
  Company Number: US-MEDAC PHARMA, INC.-2059274

PATIENT
  Age: 14 Year
  Sex: Female
  Weight: 58.18 kg

DRUGS (5)
  1. PREDNISONE. [Concomitant]
     Active Substance: PREDNISONE
  2. FOLIC ACID. [Concomitant]
     Active Substance: FOLIC ACID
  3. RASUVO [Suspect]
     Active Substance: METHOTREXATE SODIUM
     Indication: MORPHOEA
     Dates: start: 20180302
  4. DOVONEX [Concomitant]
     Active Substance: CALCIPOTRIENE
  5. CLOBETASOL PROPIONATE. [Concomitant]
     Active Substance: CLOBETASOL PROPIONATE

REACTIONS (1)
  - Product use in unapproved indication [None]

NARRATIVE: CASE EVENT DATE: 20180302
